FAERS Safety Report 6406839-5 (Version None)
Quarter: 2009Q4

REPORT INFORMATION
  Report Type: 
  Country: None (occurrence: None)
  Receive Date: 20091020
  Receipt Date: 20091007
  Transmission Date: 20100525
  Serious: Yes (Other)
  Sender: FDA-Public Use
  Company Number: GB-RANBAXY-2007RR-10342

PATIENT
  Age: 79 Year
  Sex: Male
  Weight: 70 kg

DRUGS (8)
  1. LISINOPRIL [Suspect]
     Indication: HYPERTENSION
     Dosage: 5 MG, QD
     Route: 048
  2. NIFEDIPINE [Suspect]
     Indication: DUODENAL ULCER
     Dosage: 5 MG, UNK
     Route: 048
  3. FLOMAX [Suspect]
     Indication: POLLAKIURIA
     Dosage: 400 UG, UNK
     Route: 048
     Dates: start: 20070906, end: 20070908
  4. CARBOCISTEINE [Concomitant]
  5. COMBIVENT [Concomitant]
     Indication: ASTHMA
     Route: 055
  6. LANSOPRAZOLE [Concomitant]
     Dosage: 15 MG, UNK
     Route: 048
  7. PARACETAMOL [Concomitant]
  8. SERETIDE [Concomitant]
     Indication: ASTHMA
     Dosage: 125 UG, UNK
     Route: 055

REACTIONS (3)
  - DRUG INTERACTION [None]
  - DYSPNOEA [None]
  - ORTHOSTATIC HYPOTENSION [None]
